FAERS Safety Report 17841543 (Version 1)
Quarter: 2020Q2

REPORT INFORMATION
  Report Type: Spontaneous
  Country: GB (occurrence: GB)
  Receive Date: 20200529
  Receipt Date: 20200529
  Transmission Date: 20200714
  Serious: Yes (Disabling)
  Sender: FDA-Public Use
  Company Number: GB-TEVA-2020-GB-1240911

PATIENT
  Age: 53 Year
  Sex: Female
  Weight: 58.51 kg

DRUGS (6)
  1. PARACETAMOL [Concomitant]
     Active Substance: ACETAMINOPHEN
  2. DIHYDROCODEINE [Concomitant]
     Active Substance: DIHYDROCODEINE
  3. MELOXICAM. [Concomitant]
     Active Substance: MELOXICAM
  4. PREDNISOLONE. [Suspect]
     Active Substance: PREDNISOLONE
     Indication: RHEUMATOID ARTHRITIS
     Dosage: 5 MG
     Route: 048
     Dates: start: 20090610, end: 20200405
  5. DULOXETINE. [Concomitant]
     Active Substance: DULOXETINE
  6. BUTRANS [Concomitant]
     Active Substance: BUPRENORPHINE

REACTIONS (3)
  - Pain [Not Recovered/Not Resolved]
  - Periodontal disease [Not Recovered/Not Resolved]
  - Loose tooth [Not Recovered/Not Resolved]
